FAERS Safety Report 8850130 (Version 1)
Quarter: 2012Q4

REPORT INFORMATION
  Report Type: 
  Country: FR (occurrence: FR)
  Receive Date: 20121019
  Receipt Date: 20121019
  Transmission Date: 20130627
  Serious: Yes (Other)
  Sender: FDA-Public Use
  Company Number: FR-PFIZER INC-2012221240

PATIENT
  Age: 67 Year
  Sex: Male
  Weight: 68 kg

DRUGS (5)
  1. LYRICA [Suspect]
     Indication: NEURALGIA
     Dosage: 50 mg, 3x/day
     Dates: start: 20120803
  2. LYRICA [Suspect]
     Dosage: 50 mg, 2x/day
  3. COVERSYL [Concomitant]
     Indication: BLOOD PRESSURE INCREASED
     Dosage: UNK
  4. TRAMADOL [Concomitant]
     Indication: PAIN
     Dosage: 100 mg daily divided into 3 intakes
     Dates: start: 20120803
  5. DOLIPRANE [Concomitant]
     Dosage: 1 g, 3x/day
     Dates: start: 20120803

REACTIONS (10)
  - Tachycardia [Recovered/Resolved]
  - Hyperaemia [Recovered/Resolved]
  - Hypertension [Recovered/Resolved]
  - Blood pressure abnormal [Unknown]
  - Visual impairment [Unknown]
  - Memory impairment [Unknown]
  - Fatigue [Unknown]
  - Hypoglycaemia [Unknown]
  - Micturition disorder [Unknown]
  - Headache [Recovered/Resolved]
